FAERS Safety Report 4278284-2 (Version None)
Quarter: 2004Q1

REPORT INFORMATION
  Report Type: 
  Country: None (occurrence: None)
  Receive Date: 20040121
  Receipt Date: 20040112
  Transmission Date: 20041129
  Serious: Yes (Death)
  Sender: FDA-Public Use
  Company Number: FR_031203279

PATIENT
  Age: 54 Year
  Sex: Female

DRUGS (6)
  1. GEMZAR [Suspect]
     Indication: BLADDER CANCER
     Dates: start: 20031015, end: 20031015
  2. PROZAC [Suspect]
     Dosage: 20 MG/DAY
     Dates: start: 20031010
  3. CISPLATIN [Concomitant]
  4. LEXOMIL (BROMAZEPAM) [Concomitant]
  5. SOLU-MEDROL [Concomitant]
  6. FERROUS SULFATE TAB [Concomitant]

REACTIONS (3)
  - CEREBRAL HAEMORRHAGE [None]
  - COMA [None]
  - OXYGEN SATURATION DECREASED [None]
